FAERS Safety Report 15978336 (Version 1)
Quarter: 2019Q1

REPORT INFORMATION
  Report Type: Spontaneous
  Country: FR (occurrence: FR)
  Receive Date: 20190219
  Receipt Date: 20190219
  Transmission Date: 20190418
  Serious: Yes (Hospitalization)
  Sender: FDA-Public Use
  Company Number: FR-TEVA-2019-FR-1012690

PATIENT
  Age: 41 Year
  Sex: Female

DRUGS (6)
  1. TRUVADA [Suspect]
     Active Substance: EMTRICITABINE\TENOFOVIR DISOPROXIL FUMARATE
     Indication: HIV INFECTION
     Route: 048
     Dates: start: 20060713, end: 20060721
  2. FLUOXETINE [Suspect]
     Active Substance: FLUOXETINE HYDROCHLORIDE
     Indication: DEPRESSION
     Route: 065
     Dates: start: 20060717, end: 20060721
  3. LEXOMIL [Suspect]
     Active Substance: BROMAZEPAM
     Indication: DEPRESSION
     Route: 048
     Dates: start: 20060717, end: 20060721
  4. SUSTIVA [Suspect]
     Active Substance: EFAVIRENZ
     Indication: HIV INFECTION
     Route: 048
     Dates: start: 20060713, end: 20060721
  5. GYNO-PEVARYL [Suspect]
     Active Substance: ECONAZOLE NITRATE
     Indication: VULVOVAGINAL CANDIDIASIS
     Route: 067
     Dates: start: 20060717, end: 20060721
  6. TRUVADA [Suspect]
     Active Substance: EMTRICITABINE\TENOFOVIR DISOPROXIL FUMARATE
     Route: 048
     Dates: start: 20060713, end: 20060721

REACTIONS (5)
  - Depression [Recovered/Resolved]
  - Vulvovaginal candidiasis [Recovered/Resolved]
  - Pyrexia [Recovered/Resolved]
  - Rash scarlatiniform [Recovered/Resolved]
  - Headache [Recovered/Resolved]

NARRATIVE: CASE EVENT DATE: 20060719
